FAERS Safety Report 7003556-8 (Version None)
Quarter: 2010Q3

REPORT INFORMATION
  Report Type: 
  Country: None (occurrence: None)
  Receive Date: 20100920
  Receipt Date: 20100911
  Transmission Date: 20110219
  Serious: Yes (Other)
  Sender: FDA-Public Use
  Company Number: US-AMGEN-QUU434465

PATIENT
  Sex: Female

DRUGS (2)
  1. ENBREL [Suspect]
     Indication: PRODUCT USED FOR UNKNOWN INDICATION
     Dates: start: 20030901, end: 20100501
  2. CELLCEPT [Concomitant]
     Route: 048
     Dates: start: 20100411, end: 20100501

REACTIONS (8)
  - ACNE [None]
  - ARTHRALGIA [None]
  - BONE PAIN [None]
  - EPSTEIN-BARR VIRUS ASSOCIATED LYMPHOPROLIFERATIVE DISORDER [None]
  - EYE IRRITATION [None]
  - HAEMATOCHEZIA [None]
  - ORAL HERPES [None]
  - RHEUMATOID ARTHRITIS [None]
